FAERS Safety Report 7836448 (Version 2)
Quarter: 2013Q2

REPORT INFORMATION
  Report Type: Report from Study
  Country: GB (occurrence: GB)
  Receive Date: 20110302
  Receipt Date: 20130611
  Transmission Date: 20140414
  Serious: Yes (Hospitalization)
  Sender: FDA-Public Use
  Company Number: GB-JNJFOC-20110207124

PATIENT
  Sex: Male
  Weight: 51.3 kg

DRUGS (2)
  1. REMICADE [Suspect]
     Indication: CROHN^S DISEASE
     Route: 042
  2. ADALIMUMAB [Concomitant]
     Indication: CROHN^S DISEASE

REACTIONS (4)
  - Anastomotic leak [Not Recovered/Not Resolved]
  - Intestinal stenosis [Unknown]
  - Crohn^s disease [Unknown]
  - Abdominal sepsis [Unknown]
